FAERS Safety Report 26082942 (Version 1)
Quarter: 2025Q4

REPORT INFORMATION
  Report Type: Spontaneous
  Country: US (occurrence: US)
  Receive Date: 20251124
  Receipt Date: 20251124
  Transmission Date: 20260117
  Serious: Yes (Other)
  Sender: CHEPLAPHARM
  Company Number: None

PATIENT
  Age: 43 Year
  Sex: Female

DRUGS (5)
  1. OLANZAPINE [Suspect]
     Active Substance: OLANZAPINE
  2. ESCITALOPRAM [Suspect]
     Active Substance: ESCITALOPRAM OXALATE
  3. PHENAZOPYRIDINE [Suspect]
     Active Substance: PHENAZOPYRIDINE
  4. IBUPROFEN [Suspect]
     Active Substance: IBUPROFEN
  5. ALPRAZOLAM [Suspect]
     Active Substance: ALPRAZOLAM

REACTIONS (4)
  - Anticholinergic syndrome [Recovered/Resolved]
  - Serotonin syndrome [Recovered/Resolved]
  - Methaemoglobinaemia [Unknown]
  - Intentional overdose [Recovered/Resolved]
